FAERS Safety Report 7409461-7 (Version None)
Quarter: 2011Q2

REPORT INFORMATION
  Report Type: 
  Country: None (occurrence: None)
  Receive Date: 20110412
  Receipt Date: 20110330
  Transmission Date: 20111010
  Serious: Yes (Other)
  Sender: FDA-Public Use
  Company Number: PHHY2011CA26487

PATIENT
  Sex: Male

DRUGS (2)
  1. CLOZARIL [Suspect]
     Dates: start: 20000324
  2. CHEMOTHERAPEUTICS [Concomitant]

REACTIONS (4)
  - NEOPLASM MALIGNANT [None]
  - WHITE BLOOD CELL COUNT DECREASED [None]
  - NEUTROPHIL COUNT DECREASED [None]
  - AGRANULOCYTOSIS [None]
